FAERS Safety Report 18915917 (Version 1)
Quarter: 2021Q1

REPORT INFORMATION
  Report Type: Spontaneous
  Country: US (occurrence: US)
  Receive Date: 20210219
  Receipt Date: 20210219
  Transmission Date: 20210420
  Serious: No
  Sender: FDA-Public Use
  Company Number: None

PATIENT
  Sex: Female

DRUGS (1)
  1. MYCOPHENOLATE 500MG ACCORD HEALTHCARE [Suspect]
     Active Substance: MYCOPHENOLATE MOFETIL
     Indication: SARCOIDOSIS
     Route: 048
     Dates: start: 20200825

REACTIONS (10)
  - Weight increased [None]
  - Cough [None]
  - Headache [None]
  - Oesophageal achalasia [None]
  - Oedema peripheral [None]
  - Swelling face [None]
  - Peripheral swelling [None]
  - Productive cough [None]
  - Blood glucose increased [None]
  - Blood pressure increased [None]
